FAERS Safety Report 23162971 (Version 1)
Quarter: 2023Q4

REPORT INFORMATION
  Report Type: Report from Study
  Country: CO (occurrence: CO)
  Receive Date: 20231109
  Receipt Date: 20231109
  Transmission Date: 20240110
  Serious: Yes (Other)
  Sender: FDA-Public Use
  Company Number: CO-BAYER-2021A226432

PATIENT
  Sex: Male

DRUGS (12)
  1. EYLEA [Suspect]
     Active Substance: AFLIBERCEPT
     Indication: Age-related macular degeneration
     Dosage: 2 MG, Q1MON,BOTH EYES, SOLUTION FOR INJECTION , 40 MG/ML
     Dates: start: 20210315, end: 20210315
  2. EYLEA [Suspect]
     Active Substance: AFLIBERCEPT
     Dosage: 2 MG, Q1MON, BOTH EYES , SOLUTION FOR INJECTION , 40 MG/ML
     Dates: start: 20210415, end: 20210415
  3. EYLEA [Suspect]
     Active Substance: AFLIBERCEPT
     Dosage: 2 MG, Q1MON, BOTH EYES , SOLUTION FOR INJECTION , 40 MG/ML
     Dates: start: 20210521, end: 20210521
  4. EYLEA [Suspect]
     Active Substance: AFLIBERCEPT
     Dosage: 2 MG, Q1MON, BOTH EYES, SOLUTION FOR INJECTION , 40 MG/ML
     Dates: start: 20210607, end: 20210607
  5. EYLEA [Suspect]
     Active Substance: AFLIBERCEPT
     Dosage: 2 MG, Q1MON, BOTH EYES, SOLUTION FOR INJECTION , 40 MG/ML
     Dates: start: 20210723, end: 20210723
  6. EYLEA [Suspect]
     Active Substance: AFLIBERCEPT
     Dosage: 2 MG, Q1MON, BOTH EYES, SOLUTION FOR INJECTION , 40 MG/ML
     Dates: start: 20210804, end: 20210804
  7. EYLEA [Suspect]
     Active Substance: AFLIBERCEPT
     Dosage: 2 MG, Q1MON, BOTH EYES, SOLUTION FOR INJECTION , 40 MG/ML
     Dates: start: 20210827, end: 20210827
  8. EYLEA [Suspect]
     Active Substance: AFLIBERCEPT
     Dosage: 2 MG, Q1MON, BOTH EYES, SOLUTION FOR INJECTION , 40 MG/ML
     Dates: start: 20211021, end: 20211021
  9. EYLEA [Suspect]
     Active Substance: AFLIBERCEPT
     Dosage: 2 MG, Q1MON, BOTH EYES, SOLUTION FOR INJECTION , 40 MG/ML
     Dates: start: 20220616, end: 20220616
  10. EYLEA [Suspect]
     Active Substance: AFLIBERCEPT
     Dosage: 2 MG, Q1MON, BOTH EYES, SOLUTION FOR INJECTION , 40 MG/ML
     Dates: start: 20220922, end: 20220922
  11. EYLEA [Suspect]
     Active Substance: AFLIBERCEPT
     Dosage: 2 MG, Q1MON, LEFT EYE, SOLUTION FOR INJECTION , 40 MG/ML
     Dates: start: 20221215, end: 20221215
  12. EYLEA [Suspect]
     Active Substance: AFLIBERCEPT
     Dosage: 2 MG, Q1MON, RIGHT EYE , SOLUTION FOR INJECTION , 40 MG/ML
     Dates: start: 20221220

REACTIONS (8)
  - Blindness [Not Recovered/Not Resolved]
  - Cataract [Not Recovered/Not Resolved]
  - Inappropriate schedule of product administration [Not Recovered/Not Resolved]
  - Eye irritation [Not Recovered/Not Resolved]
  - Influenza like illness [Unknown]
  - Feeling abnormal [Unknown]
  - Cough [Unknown]
  - Fatigue [Unknown]

NARRATIVE: CASE EVENT DATE: 20210901
